FAERS Safety Report 15433323 (Version 1)
Quarter: 2018Q3

REPORT INFORMATION
  Report Type: Spontaneous
  Country: US (occurrence: US)
  Receive Date: 20180921
  Receipt Date: 20180921
  Transmission Date: 20181010
  Serious: No
  Sender: FDA-Public Use
  Company Number: None

PATIENT
  Age: 7 Year
  Sex: Female
  Weight: 23.4 kg

DRUGS (2)
  1. MIRALAX [Suspect]
     Active Substance: POLYETHYLENE GLYCOL 3350
     Indication: CONSTIPATION
     Dosage: ?          QUANTITY:1 CAP FULL;OTHER FREQUENCY:CLEAN OUT 9 DOSES;?
     Route: 048
     Dates: start: 20180816, end: 20180826
  2. SMARTY PANTS FIBER GUNNIES [Concomitant]

REACTIONS (7)
  - Aggression [None]
  - Crying [None]
  - Anger [None]
  - Cerebral disorder [None]
  - Drug prescribing error [None]
  - Product use issue [None]
  - Screaming [None]

NARRATIVE: CASE EVENT DATE: 20180816
